FAERS Safety Report 26101059 (Version 1)
Quarter: 2025Q4

REPORT INFORMATION
  Report Type: Spontaneous
  Country: US (occurrence: US)
  Receive Date: 20251128
  Receipt Date: 20251128
  Transmission Date: 20260119
  Serious: Yes (Hospitalization, Other)
  Sender: ASTELLAS
  Company Number: US-ASTELLAS-2025-AER-065486

PATIENT
  Age: 8 Decade
  Sex: Male

DRUGS (2)
  1. TACROLIMUS [Suspect]
     Active Substance: TACROLIMUS
     Indication: Renal transplant
     Route: 065
  2. TACROLIMUS [Suspect]
     Active Substance: TACROLIMUS
     Dosage: ADJUSTED
     Route: 065

REACTIONS (4)
  - Neurotoxicity [Recovering/Resolving]
  - Encephalopathy [Recovering/Resolving]
  - Psychotic disorder [Recovering/Resolving]
  - Disease recurrence [Recovering/Resolving]
